FAERS Safety Report 7555513-0 (Version None)
Quarter: 2011Q2

REPORT INFORMATION
  Report Type: 
  Country: None (occurrence: None)
  Receive Date: 20110617
  Receipt Date: 20110615
  Transmission Date: 20111010
  Serious: Yes (Life-Threatening)
  Sender: FDA-Public Use
  Company Number: PHHY2011US52886

PATIENT
  Sex: Female

DRUGS (2)
  1. VIDAZA [Concomitant]
  2. EXJADE [Suspect]
     Dosage: 1000 MG, QD
     Route: 048

REACTIONS (1)
  - INTESTINAL ISCHAEMIA [None]
